FAERS Safety Report 15865982 (Version 1)
Quarter: 2019Q1

REPORT INFORMATION
  Report Type: Spontaneous
  Country: US (occurrence: US)
  Receive Date: 20190125
  Receipt Date: 20190125
  Transmission Date: 20190417
  Serious: Yes (Hospitalization)
  Sender: FDA-Public Use
  Company Number: US-PHARMING-PHAUS2019000063

PATIENT

DRUGS (7)
  1. RUCONEST [Suspect]
     Active Substance: HUMAN C1-ESTERASE INHIBITOR
     Dosage: 3150 IU, DAILY
     Route: 042
  2. RUCONEST [Suspect]
     Active Substance: HUMAN C1-ESTERASE INHIBITOR
     Dosage: 3150 IU, AS NEEDED
     Route: 042
     Dates: start: 20180625
  3. SODIUM CHLORIDE 0.9% [Concomitant]
     Active Substance: SODIUM CHLORIDE
  4. RUCONEST [Suspect]
     Active Substance: HUMAN C1-ESTERASE INHIBITOR
     Indication: HEREDITARY ANGIOEDEMA
     Dosage: 3150 IU, AS NEEDED
     Route: 042
     Dates: start: 2016
  5. PRENATAL [Concomitant]
     Active Substance: VITAMINS
  6. EPINEPHRINE. [Concomitant]
     Active Substance: EPINEPHRINE
  7. STERILE WATER [Concomitant]
     Active Substance: WATER

REACTIONS (3)
  - Bacterial infection [Unknown]
  - Sepsis [Unknown]
  - Swelling [Unknown]

NARRATIVE: CASE EVENT DATE: 201901
